FAERS Safety Report 12183342 (Version 1)
Quarter: 2016Q1

REPORT INFORMATION
  Report Type: Spontaneous
  Country: GB (occurrence: US)
  Receive Date: 20160316
  Receipt Date: 20160316
  Transmission Date: 20160526
  Serious: No
  Sender: FDA-Public Use
  Company Number: GB-AUROBINDO-AUR-APL-2015-01189

PATIENT
  Sex: Female

DRUGS (1)
  1. GABAPENTIN CAPSULES 100 MG [Suspect]
     Active Substance: GABAPENTIN
     Indication: PRODUCT USED FOR UNKNOWN INDICATION
     Dosage: 300 MG, DAILY
     Route: 048
     Dates: start: 201407

REACTIONS (3)
  - Product quality issue [Unknown]
  - Drug administration error [Unknown]
  - Somnolence [Unknown]
